FAERS Safety Report 10753486 (Version 1)
Quarter: 2015Q1

REPORT INFORMATION
  Report Type: Spontaneous
  Country: US (occurrence: None)
  Receive Date: 20150129
  Receipt Date: 20150129
  Transmission Date: 20150721
  Serious: Yes (Congenital Anomaly, Other)
  Sender: FDA-Public Use
  Company Number: None

PATIENT
  Age: 26 Year
  Sex: Female
  Weight: 50.8 kg

DRUGS (1)
  1. LUPRON DEPOT [Suspect]
     Active Substance: LEUPROLIDE ACETATE
     Indication: OVULATION DISORDER
     Dosage: GIVEN INTO/UNDER THE SKIN
     Dates: start: 20080821, end: 20090204

REACTIONS (6)
  - Atrophy [None]
  - Muscle atrophy [None]
  - Congenital anomaly in offspring [None]
  - Cervix disorder [None]
  - Uterine haemorrhage [None]
  - Maternal exposure before pregnancy [None]

NARRATIVE: CASE EVENT DATE: 20100810
